FAERS Safety Report 9010128 (Version 1)
Quarter: 2013Q1

REPORT INFORMATION
  Report Type: Report from Study
  Country: CA (occurrence: CA)
  Receive Date: 20130110
  Receipt Date: 20130110
  Transmission Date: 20140127
  Serious: Yes (Hospitalization)
  Sender: FDA-Public Use
  Company Number: CA-JNJFOC-20130102858

PATIENT
  Age: 63 Year
  Sex: Female
  Weight: 96 kg

DRUGS (4)
  1. REMICADE [Suspect]
     Indication: CROHN^S DISEASE
     Route: 042
  2. REMICADE [Suspect]
     Indication: CROHN^S DISEASE
     Route: 042
     Dates: start: 20120403
  3. REMICADE [Suspect]
     Indication: CROHN^S DISEASE
     Route: 042
     Dates: start: 20121030, end: 20121030
  4. PREDNISONE [Concomitant]
     Dosage: WEANED OFF OVER 5 DAYS
     Route: 065

REACTIONS (2)
  - Proctalgia [Unknown]
  - Abdominal pain [Unknown]
